FAERS Safety Report 10917351 (Version 2)
Quarter: 2015Q3

REPORT INFORMATION
  Report Type: Spontaneous
  Country: US (occurrence: US)
  Receive Date: 20150316
  Receipt Date: 20150730
  Transmission Date: 20151125
  Serious: Yes (Other)
  Sender: FDA-Public Use
  Company Number: US-JNJFOC-20150310848

PATIENT
  Sex: Male

DRUGS (2)
  1. INVEGA SUSTENNA [Suspect]
     Active Substance: PALIPERIDONE PALMITATE
     Indication: HOMICIDAL IDEATION
     Route: 030
  2. INVEGA SUSTENNA [Suspect]
     Active Substance: PALIPERIDONE PALMITATE
     Indication: SUICIDAL IDEATION
     Route: 030

REACTIONS (4)
  - Hyperprolactinaemia [Unknown]
  - Gynaecomastia [Not Recovered/Not Resolved]
  - Galactorrhoea [Unknown]
  - Obesity [Recovering/Resolving]

NARRATIVE: CASE EVENT DATE: 2011
